FAERS Safety Report 5148276-X (Version None)
Quarter: 2006Q4

REPORT INFORMATION
  Report Type: 
  Country: None (occurrence: None)
  Receive Date: 20060918
  Receipt Date: 20060727
  Transmission Date: 20070319
  Serious: Yes (Hospitalization)
  Sender: FDA-Public Use
  Company Number: US-JNJFOC-20060706084

PATIENT
  Age: 17 Year
  Sex: Female
  Weight: 87.0906 kg

DRUGS (1)
  1. ORTHO EVRA [Suspect]
     Indication: DYSFUNCTIONAL UTERINE BLEEDING
     Dosage: TRANSDERMAL
     Route: 062
     Dates: start: 20050901, end: 20060101

REACTIONS (1)
  - PULMONARY EMBOLISM [None]
